FAERS Safety Report 8069726-5 (Version None)
Quarter: 2012Q1

REPORT INFORMATION
  Report Type: 
  Country: None (occurrence: None)
  Receive Date: 20120125
  Receipt Date: 20110415
  Transmission Date: 20120608
  Serious: No
  Sender: FDA-Public Use
  Company Number: US-PFIZER INC-2011US-42804

PATIENT
  Sex: Female
  Weight: 67.57 kg

DRUGS (7)
  1. CALAN [Suspect]
     Indication: HYPERTENSION
     Dosage: 180 MG, 2X/DAY
     Route: 048
  2. LOTENSIN [Concomitant]
     Dosage: UNK
     Route: 065
  3. CALAN [Suspect]
     Dosage: 1/2 OF 240 MG
     Route: 048
     Dates: start: 20110303
  4. VERAPAMIL [Suspect]
     Indication: HYPERTENSION
     Dosage: 180 MG, 2X/DAY
     Route: 048
     Dates: start: 20100101, end: 20100101
  5. PROTONIX [Concomitant]
     Dosage: UNK
     Route: 065
  6. LORAZEPAM [Concomitant]
     Dosage: UNK
     Route: 065
  7. MOTRIN [Suspect]
     Indication: HEADACHE
     Dosage: UNK
     Route: 048
     Dates: start: 20110101

REACTIONS (18)
  - HAEMORRHAGE [None]
  - VOMITING [None]
  - INFLUENZA [None]
  - CRYING [None]
  - MIGRAINE [None]
  - DRUG ADMINISTRATION ERROR [None]
  - NERVOUSNESS [None]
  - THYROID DISORDER [None]
  - DIZZINESS [None]
  - FEAR [None]
  - NAUSEA [None]
  - COLONOSCOPY [None]
  - ADVERSE DRUG REACTION [None]
  - CHEST PAIN [None]
  - ANXIETY [None]
  - HYPERSENSITIVITY [None]
  - HEADACHE [None]
  - MALAISE [None]
